FAERS Safety Report 8587477-5 (Version None)
Quarter: 2012Q3

REPORT INFORMATION
  Report Type: 
  Country: None (occurrence: None)
  Receive Date: 20120810
  Receipt Date: 20120801
  Transmission Date: 20120928
  Serious: Yes (Death)
  Sender: FDA-Public Use
  Company Number: JP-009507513-1203USA00361

PATIENT

DRUGS (9)
  1. AMITRIPTYLINE HCL [Suspect]
     Indication: PANIC DISORDER
     Dosage: UNK
     Route: 048
  2. TETRAMIDE TABLETS 10MG [Suspect]
     Indication: PANIC DISORDER
     Dosage: UNK
     Route: 048
  3. FLUVOXAMINE MALEATE [Suspect]
     Indication: PANIC DISORDER
     Dosage: UNK
     Route: 048
  4. DEPAKENE [Concomitant]
     Route: 048
  5. LEXOTAN [Concomitant]
     Route: 048
  6. PAXIL [Concomitant]
     Route: 048
  7. ROHYPNOL [Concomitant]
     Route: 048
  8. ALPRAZOLAM [Concomitant]
     Route: 048
  9. CHLORPROMAZINE HCL [Concomitant]
     Route: 048

REACTIONS (2)
  - TOXICITY TO VARIOUS AGENTS [None]
  - MULTIPLE DRUG OVERDOSE INTENTIONAL [None]
